FAERS Safety Report 24147932 (Version 2)
Quarter: 2025Q3

REPORT INFORMATION
  Report Type: Spontaneous
  Country: EU (occurrence: EU)
  Receive Date: 20240729
  Receipt Date: 20250902
  Transmission Date: 20251020
  Serious: Yes (Life-Threatening)
  Sender: MYLAN
  Company Number: None

PATIENT
  Age: 53 Year
  Sex: Female
  Weight: 48.5 kg

DRUGS (32)
  1. MIRTAZAPINE [Suspect]
     Active Substance: MIRTAZAPINE
     Indication: Product used for unknown indication
     Dosage: 30 MILLIGRAM, QD
     Dates: end: 20240605
  2. MIRTAZAPINE [Suspect]
     Active Substance: MIRTAZAPINE
     Dosage: 30 MILLIGRAM, QD
     Route: 048
     Dates: end: 20240605
  3. MIRTAZAPINE [Suspect]
     Active Substance: MIRTAZAPINE
     Dosage: 30 MILLIGRAM, QD
     Route: 048
     Dates: end: 20240605
  4. MIRTAZAPINE [Suspect]
     Active Substance: MIRTAZAPINE
     Dosage: 30 MILLIGRAM, QD
     Dates: end: 20240605
  5. LAMOTRIGINE [Suspect]
     Active Substance: LAMOTRIGINE
     Indication: Epilepsy
     Dosage: 400 MILLIGRAM, QD
     Dates: end: 20240605
  6. LAMOTRIGINE [Suspect]
     Active Substance: LAMOTRIGINE
     Dosage: 400 MILLIGRAM, QD
     Route: 048
     Dates: end: 20240605
  7. LAMOTRIGINE [Suspect]
     Active Substance: LAMOTRIGINE
     Dosage: 400 MILLIGRAM, QD
     Route: 048
     Dates: end: 20240605
  8. LAMOTRIGINE [Suspect]
     Active Substance: LAMOTRIGINE
     Dosage: 400 MILLIGRAM, QD
     Dates: end: 20240605
  9. VALPROATE SODIUM [Suspect]
     Active Substance: VALPROATE SODIUM
     Indication: Epilepsy
     Dosage: 3 DOSAGE FORM, QD, PROLONGED-RELEASE GRANULES IN SACHET
  10. VALPROATE SODIUM [Suspect]
     Active Substance: VALPROATE SODIUM
     Dosage: 3 DOSAGE FORM, QD, PROLONGED-RELEASE GRANULES IN SACHET
     Route: 048
  11. VALPROATE SODIUM [Suspect]
     Active Substance: VALPROATE SODIUM
     Dosage: 3 DOSAGE FORM, QD, PROLONGED-RELEASE GRANULES IN SACHET
     Route: 048
  12. VALPROATE SODIUM [Suspect]
     Active Substance: VALPROATE SODIUM
     Dosage: 3 DOSAGE FORM, QD, PROLONGED-RELEASE GRANULES IN SACHET
  13. UMECLIDINIUM BROMIDE\VILANTEROL TRIFENATATE [Concomitant]
     Active Substance: UMECLIDINIUM BROMIDE\VILANTEROL TRIFENATATE
     Dosage: 1 DOSAGE FORM, QD
     Dates: end: 20240605
  14. UMECLIDINIUM BROMIDE\VILANTEROL TRIFENATATE [Concomitant]
     Active Substance: UMECLIDINIUM BROMIDE\VILANTEROL TRIFENATATE
     Dosage: 1 DOSAGE FORM, QD
     Route: 055
     Dates: end: 20240605
  15. UMECLIDINIUM BROMIDE\VILANTEROL TRIFENATATE [Concomitant]
     Active Substance: UMECLIDINIUM BROMIDE\VILANTEROL TRIFENATATE
     Dosage: 1 DOSAGE FORM, QD
     Route: 055
     Dates: end: 20240605
  16. UMECLIDINIUM BROMIDE\VILANTEROL TRIFENATATE [Concomitant]
     Active Substance: UMECLIDINIUM BROMIDE\VILANTEROL TRIFENATATE
     Dosage: 1 DOSAGE FORM, QD
     Dates: end: 20240605
  17. DESOGESTREL [Concomitant]
     Active Substance: DESOGESTREL
     Dosage: 75 MICROGRAM, QD
     Dates: end: 20240605
  18. DESOGESTREL [Concomitant]
     Active Substance: DESOGESTREL
     Dosage: 75 MICROGRAM, QD
     Route: 048
     Dates: end: 20240605
  19. DESOGESTREL [Concomitant]
     Active Substance: DESOGESTREL
     Dosage: 75 MICROGRAM, QD
     Route: 048
     Dates: end: 20240605
  20. DESOGESTREL [Concomitant]
     Active Substance: DESOGESTREL
     Dosage: 75 MICROGRAM, QD
     Dates: end: 20240605
  21. Nicotine eg [Concomitant]
     Dosage: 1 DOSAGE FORM, QD, 14 MG/24 H
     Dates: end: 20240605
  22. Nicotine eg [Concomitant]
     Dosage: 1 DOSAGE FORM, QD, 14 MG/24 H
     Route: 003
     Dates: end: 20240605
  23. Nicotine eg [Concomitant]
     Dosage: 1 DOSAGE FORM, QD, 14 MG/24 H
     Route: 003
     Dates: end: 20240605
  24. Nicotine eg [Concomitant]
     Dosage: 1 DOSAGE FORM, QD, 14 MG/24 H
     Dates: end: 20240605
  25. NITROFURANTOIN [Concomitant]
     Active Substance: NITROFURANTOIN
     Dosage: 3 DOSAGE FORM, QD
     Dates: start: 20240603, end: 20240605
  26. NITROFURANTOIN [Concomitant]
     Active Substance: NITROFURANTOIN
     Dosage: 3 DOSAGE FORM, QD
     Route: 048
     Dates: start: 20240603, end: 20240605
  27. NITROFURANTOIN [Concomitant]
     Active Substance: NITROFURANTOIN
     Dosage: 3 DOSAGE FORM, QD
     Route: 048
     Dates: start: 20240603, end: 20240605
  28. NITROFURANTOIN [Concomitant]
     Active Substance: NITROFURANTOIN
     Dosage: 3 DOSAGE FORM, QD
     Dates: start: 20240603, end: 20240605
  29. BETAHISTINE HYDROCHLORIDE [Concomitant]
     Active Substance: BETAHISTINE HYDROCHLORIDE
     Dosage: 48 MILLIGRAM, QD
     Dates: end: 20240605
  30. BETAHISTINE HYDROCHLORIDE [Concomitant]
     Active Substance: BETAHISTINE HYDROCHLORIDE
     Dosage: 48 MILLIGRAM, QD
     Route: 048
     Dates: end: 20240605
  31. BETAHISTINE HYDROCHLORIDE [Concomitant]
     Active Substance: BETAHISTINE HYDROCHLORIDE
     Dosage: 48 MILLIGRAM, QD
     Route: 048
     Dates: end: 20240605
  32. BETAHISTINE HYDROCHLORIDE [Concomitant]
     Active Substance: BETAHISTINE HYDROCHLORIDE
     Dosage: 48 MILLIGRAM, QD
     Dates: end: 20240605

REACTIONS (3)
  - Anticonvulsant drug level increased [Recovered/Resolved]
  - Coma [Recovered/Resolved]
  - Status epilepticus [Recovered/Resolved]

NARRATIVE: CASE EVENT DATE: 20240605
